FAERS Safety Report 15301030 (Version 1)
Quarter: 2018Q3

REPORT INFORMATION
  Report Type: Spontaneous
  Country: NL (occurrence: NL)
  Receive Date: 20180821
  Receipt Date: 20180821
  Transmission Date: 20181010
  Serious: Yes (Hospitalization)
  Sender: FDA-Public Use
  Company Number: NL-SA-2018SA225287

PATIENT
  Age: 67 Year
  Sex: Female
  Weight: 75 kg

DRUGS (3)
  1. CARBASALATE CALCIUM [Concomitant]
     Active Substance: CARBASPIRIN
     Dosage: 100 MG, QD
     Dates: start: 20120709
  2. COAPROVEL [Suspect]
     Active Substance: HYDROCHLOROTHIAZIDE\IRBESARTAN
     Indication: HYPERTENSION
     Dosage: 1 DF, QD
     Dates: start: 2018, end: 20180720
  3. NORTRILEN [Concomitant]
     Active Substance: NORTRIPTYLINE
     Dosage: 50 MG, BID
     Dates: start: 20170707

REACTIONS (1)
  - Pancreatic cyst [Unknown]

NARRATIVE: CASE EVENT DATE: 2018
